FAERS Safety Report 4642375-4 (Version None)
Quarter: 2005Q2

REPORT INFORMATION
  Report Type: 
  Country: None (occurrence: None)
  Receive Date: 20050422
  Receipt Date: 20030228
  Transmission Date: 20051028
  Serious: Yes (Hospitalization)
  Sender: FDA-Public Use
  Company Number: JP-GLAXOSMITHKLINE-B0293874A

PATIENT
  Age: 22 Year
  Sex: Male

DRUGS (8)
  1. ABACAVIR SULFATE [Suspect]
     Indication: HIV INFECTION
     Dosage: 600MG PER DAY
     Route: 048
     Dates: start: 20000518, end: 20020424
  2. EFAVIRENZ [Suspect]
     Indication: HIV INFECTION
     Dosage: 600MG PER DAY
     Dates: start: 20000518, end: 20020424
  3. STAVUDINE [Suspect]
     Indication: HIV INFECTION
     Dosage: 60MG PER DAY
     Dates: start: 20000117, end: 20020424
  4. NELFINAVIR MESYLATE [Suspect]
     Indication: HIV INFECTION
     Dosage: 2G PER DAY
     Dates: start: 20000117, end: 20020424
  5. FEIBA [Concomitant]
     Indication: FACTOR IX DEFICIENCY
     Dates: start: 20010401
  6. UNSPECIFIED MEDICATION [Concomitant]
     Indication: FACTOR IX DEFICIENCY
     Dates: start: 20010401
  7. GASTER [Concomitant]
     Indication: GASTRITIS
     Dosage: 40MG PER DAY
     Dates: start: 20020405, end: 20020424
  8. NOVACT M [Concomitant]
     Indication: FACTOR IX DEFICIENCY
     Route: 042
     Dates: start: 20020415, end: 20020417

REACTIONS (4)
  - BLOOD URINE PRESENT [None]
  - NEPHROTIC SYNDROME [None]
  - OEDEMA PERIPHERAL [None]
  - WEIGHT INCREASED [None]
